FAERS Safety Report 6246308-9 (Version None)
Quarter: 2009Q2

REPORT INFORMATION
  Report Type: 
  Country: None (occurrence: None)
  Receive Date: 20090626
  Receipt Date: 20090622
  Transmission Date: 20091009
  Serious: Yes (Other)
  Sender: FDA-Public Use
  Company Number: US-BAYER-200924409NA

PATIENT
  Sex: Female

DRUGS (2)
  1. YAZ [Suspect]
     Indication: DRUG USE FOR UNKNOWN INDICATION
     Route: 048
  2. YASMIN [Suspect]
     Indication: DRUG USE FOR UNKNOWN INDICATION
     Route: 048

REACTIONS (8)
  - ANHEDONIA [None]
  - ANXIETY [None]
  - CHOLECYSTECTOMY [None]
  - ECONOMIC PROBLEM [None]
  - FEAR [None]
  - MULTIPLE INJURIES [None]
  - PAIN [None]
  - SOCIAL AVOIDANT BEHAVIOUR [None]
